FAERS Safety Report 5802693-0 (Version None)
Quarter: 2008Q3

REPORT INFORMATION
  Report Type: 
  Country: None (occurrence: None)
  Receive Date: 20080708
  Receipt Date: 20080627
  Transmission Date: 20090109
  Serious: Yes (Hospitalization)
  Sender: FDA-Public Use
  Company Number: JP-BAYER-200811232BYL

PATIENT
  Age: 66 Year
  Sex: Male
  Weight: 71 kg

DRUGS (11)
  1. NEXAVAR [Suspect]
     Indication: RENAL CELL CARCINOMA STAGE IV
     Dosage: TOTAL DAILY DOSE: 800 MG  UNIT DOSE: 200 MG
     Route: 048
     Dates: start: 20080605, end: 20080613
  2. NEXAVAR [Suspect]
     Dosage: UNIT DOSE: 200 MG
     Route: 048
     Dates: start: 20080620
  3. GLYSENNID [Concomitant]
     Indication: PROPHYLAXIS
     Dosage: UNIT DOSE: 12 MG
     Route: 048
  4. MOBIC [Concomitant]
     Indication: CANCER PAIN
     Dosage: TOTAL DAILY DOSE: 10 MG  UNIT DOSE: 10 MG
     Route: 048
  5. TAKEPRON [Concomitant]
     Indication: PROPHYLAXIS
     Dosage: TOTAL DAILY DOSE: 15 MG  UNIT DOSE: 15 MG
     Route: 048
  6. MAGLAX [Concomitant]
     Indication: PROPHYLAXIS
     Dosage: UNIT DOSE: 330 MG
     Route: 048
  7. DECADRON [Concomitant]
     Indication: PALLIATIVE CARE
     Dosage: UNIT DOSE: 0.5 MG
     Route: 048
  8. URIEF [Concomitant]
     Indication: PROPHYLAXIS
     Dosage: UNIT DOSE: 4 MG
     Route: 048
  9. UBRETID [Concomitant]
     Indication: PROPHYLAXIS
     Dosage: TOTAL DAILY DOSE: 5 MG  UNIT DOSE: 5 MG
     Route: 048
  10. OXYCONTIN [Concomitant]
     Indication: CANCER PAIN
     Dosage: UNIT DOSE: 5 MG
     Route: 048
  11. MUCOSTA [Concomitant]
     Indication: GASTRITIS PROPHYLAXIS
     Dosage: UNIT DOSE: 100 MG
     Route: 048
     Dates: start: 20080617

REACTIONS (2)
  - ANGINA UNSTABLE [None]
  - HYPERGLYCAEMIA [None]
